FAERS Safety Report 13075649 (Version 2)
Quarter: 2017Q1

REPORT INFORMATION
  Report Type: Spontaneous
  Country: AR (occurrence: AR)
  Receive Date: 20161230
  Receipt Date: 20170111
  Transmission Date: 20170428
  Serious: Yes (Other)
  Sender: FDA-Public Use
  Company Number: PHHY2016AR122392

PATIENT
  Age: 63 Year
  Sex: Female

DRUGS (4)
  1. VOLTAREN D [Suspect]
     Active Substance: DICLOFENAC
     Indication: BACK PAIN
     Dosage: 25 MG, QD
     Route: 065
  2. VOLTAREN D [Suspect]
     Active Substance: DICLOFENAC
     Indication: MUSCLE CONTRACTURE
     Dosage: 75 MG, UNK
     Route: 065
  3. VOLTAREN [Suspect]
     Active Substance: DICLOFENAC SODIUM
     Indication: MUSCLE CONTRACTURE
     Dosage: UNK
     Route: 065
  4. PRIDINOL [Suspect]
     Active Substance: PRIDINOL
     Indication: PRODUCT USED FOR UNKNOWN INDICATION
     Route: 065

REACTIONS (10)
  - Hypersensitivity [Unknown]
  - Spinal pain [Unknown]
  - Drug ineffective [Unknown]
  - Vertigo [Unknown]
  - Pain [Unknown]
  - Blindness [Unknown]
  - Neck pain [Not Recovered/Not Resolved]
  - Anger [Unknown]
  - Memory impairment [Unknown]
  - Malaise [Unknown]

NARRATIVE: CASE EVENT DATE: 201610
